FAERS Safety Report 24389818 (Version 5)
Quarter: 2025Q4

REPORT INFORMATION
  Report Type: Report from Study
  Country: EU (occurrence: EU)
  Receive Date: 20241003
  Receipt Date: 20251112
  Transmission Date: 20260117
  Serious: Yes (Hospitalization, Other)
  Sender: TAKEDA
  Company Number: EU-TAKEDA-2021TUS018970

PATIENT
  Age: 61 Year
  Sex: Female

DRUGS (14)
  1. HUMAN IMMUNOGLOBULIN G\HYALURONIDASE RECOMBINANT HUMAN [Suspect]
     Active Substance: HUMAN IMMUNOGLOBULIN G\HYALURONIDASE (HUMAN RECOMBINANT)
     Indication: Plasma cell myeloma
     Dosage: 300 MILLILITER, MONTHLY
     Dates: start: 202011
  2. HUMAN IMMUNOGLOBULIN G\HYALURONIDASE RECOMBINANT HUMAN [Suspect]
     Active Substance: HUMAN IMMUNOGLOBULIN G\HYALURONIDASE (HUMAN RECOMBINANT)
     Indication: Immunodeficiency common variable
     Dosage: 300 MILLIGRAM, MONTHLY
     Dates: start: 2020
  3. HUMAN IMMUNOGLOBULIN G\HYALURONIDASE RECOMBINANT HUMAN [Suspect]
     Active Substance: HUMAN IMMUNOGLOBULIN G\HYALURONIDASE (HUMAN RECOMBINANT)
     Indication: Immunodeficiency
     Dosage: UNK
  4. HUMAN IMMUNOGLOBULIN G\HYALURONIDASE RECOMBINANT HUMAN [Suspect]
     Active Substance: HUMAN IMMUNOGLOBULIN G\HYALURONIDASE (HUMAN RECOMBINANT)
     Dosage: 300 MILLILITER, MONTHLY
     Dates: start: 20250414
  5. ASPIRIN [Concomitant]
     Active Substance: ASPIRIN
     Dosage: UNK UNK, QD
  6. ENALAPRIL\HYDROCHLOROTHIAZIDE [Concomitant]
     Active Substance: ENALAPRIL\HYDROCHLOROTHIAZIDE
     Indication: Blood pressure measurement
     Dosage: UNK UNK, QD
  7. PRASUGREL HYDROCHLORIDE [Concomitant]
     Active Substance: PRASUGREL HYDROCHLORIDE
     Indication: Coagulopathy
     Dosage: UNK UNK, QD
  8. ROSUVASTATIN [Concomitant]
     Active Substance: ROSUVASTATIN
     Dosage: 3 DOSAGE FORM, QD
  9. BISOPROLOL FUMARATE [Concomitant]
     Active Substance: BISOPROLOL FUMARATE
     Dosage: 10 MILLIGRAM
  10. AMLODIPINE BESYLATE [Concomitant]
     Active Substance: AMLODIPINE BESYLATE
     Indication: Blood pressure measurement
     Dosage: UNK, QD
  11. Ipinzan [Concomitant]
     Indication: Diabetes mellitus
     Dosage: UNK
  12. INVOKANA [Concomitant]
     Active Substance: CANAGLIFLOZIN
     Indication: Diabetes mellitus
     Dosage: 100 MILLIGRAM, QD
  13. INVOKANA [Concomitant]
     Active Substance: CANAGLIFLOZIN
     Indication: Cardiac disorder
  14. REMICADE [Concomitant]
     Active Substance: INFLIXIMAB
     Dosage: UNK

REACTIONS (29)
  - Fall [Unknown]
  - Hyperplasia adrenal [Unknown]
  - Weight decreased [Unknown]
  - Diabetic coma [Unknown]
  - Rheumatoid arthritis [Not Recovered/Not Resolved]
  - Balance disorder [Unknown]
  - Dizziness [Not Recovered/Not Resolved]
  - COVID-19 [Recovered/Resolved]
  - Administration site inflammation [Recovering/Resolving]
  - Burns second degree [Recovering/Resolving]
  - Injury [Not Recovered/Not Resolved]
  - Blister [Recovering/Resolving]
  - Oxygen saturation decreased [Recovering/Resolving]
  - Blood pressure decreased [Recovering/Resolving]
  - Back pain [Not Recovered/Not Resolved]
  - Cortisol increased [Unknown]
  - General physical health deterioration [Unknown]
  - Mental disorder [Unknown]
  - Speech disorder [Unknown]
  - Blood glucose fluctuation [Recovering/Resolving]
  - Constipation [Not Recovered/Not Resolved]
  - Cortisol abnormal [Unknown]
  - Gastritis [Unknown]
  - Tendon injury [Not Recovered/Not Resolved]
  - Weight increased [Unknown]
  - Anaemia [Not Recovered/Not Resolved]
  - Malaise [Unknown]
  - Eructation [Unknown]
  - Restenosis [Unknown]

NARRATIVE: CASE EVENT DATE: 20240601
